FAERS Safety Report 5081838-7 (Version None)
Quarter: 2006Q3

REPORT INFORMATION
  Report Type: 
  Country: None (occurrence: None)
  Receive Date: 20060816
  Receipt Date: 20060714
  Transmission Date: 20061208
  Serious: Yes (Other)
  Sender: FDA-Public Use
  Company Number: BR-ROCHE-455674

PATIENT
  Age: 16 Year
  Sex: Female

DRUGS (2)
  1. ROACUTAN [Suspect]
     Indication: ACNE
     Route: 048
     Dates: start: 20060610, end: 20060715
  2. ROACUTAN [Suspect]
     Route: 048
     Dates: start: 20060715

REACTIONS (3)
  - FALL [None]
  - HEADACHE [None]
  - PETIT MAL EPILEPSY [None]
